FAERS Safety Report 22241555 (Version 1)
Quarter: 2023Q2

REPORT INFORMATION
  Report Type: Report from Study
  Country: CR (occurrence: CR)
  Receive Date: 20230421
  Receipt Date: 20230421
  Transmission Date: 20230722
  Serious: Yes (Other)
  Sender: FDA-Public Use
  Company Number: CR-002147023-NVSC2023CR073251

PATIENT
  Age: 37 Year
  Sex: Female
  Weight: 77 kg

DRUGS (1)
  1. GILENYA [Suspect]
     Active Substance: FINGOLIMOD HYDROCHLORIDE
     Indication: Multiple sclerosis
     Dosage: 0.5 MG, QD
     Route: 048
     Dates: start: 20230306

REACTIONS (14)
  - Abdominal pain upper [Unknown]
  - Dyspepsia [Unknown]
  - Drug intolerance [Unknown]
  - Hyperhidrosis [Unknown]
  - Pain [Unknown]
  - Decreased appetite [Unknown]
  - Headache [Unknown]
  - Blood pressure decreased [Unknown]
  - Nausea [Unknown]
  - Asthenia [Unknown]
  - Dizziness [Unknown]
  - Fatigue [Unknown]
  - Abdominal distension [Unknown]
  - Depressed mood [Unknown]

NARRATIVE: CASE EVENT DATE: 20230306
